FAERS Safety Report 6446300-5 (Version None)
Quarter: 2009Q4

REPORT INFORMATION
  Report Type: 
  Country: None (occurrence: None)
  Receive Date: 20091119
  Receipt Date: 20091109
  Transmission Date: 20100525
  Serious: Yes (Other)
  Sender: FDA-Public Use
  Company Number: ZA-JNJFOC-20091102794

PATIENT
  Sex: Female
  Weight: 65 kg

DRUGS (1)
  1. REVELLEX [Suspect]
     Indication: RHEUMATOID ARTHRITIS
     Dosage: FREQUENCY UNSPECIFIED
     Route: 042

REACTIONS (1)
  - CATARACT OPERATION [None]
